FAERS Safety Report 22222828 (Version 1)
Quarter: 2023Q2

REPORT INFORMATION
  Report Type: Spontaneous
  Country: US (occurrence: None)
  Receive Date: 20230417
  Receipt Date: 20230417
  Transmission Date: 20230722
  Serious: No
  Sender: FDA-Public Use
  Company Number: None

PATIENT
  Age: 56 Year
  Sex: Female

DRUGS (9)
  1. DUPIXENT [Suspect]
     Active Substance: DUPILUMAB
     Indication: Nasal polyps
     Dosage: OTHER FREQUENCY : EVERY OTHER WEEK;?
     Route: 058
     Dates: start: 20230121, end: 20230313
  2. QVAR [Concomitant]
     Active Substance: BECLOMETHASONE DIPROPIONATE
  3. ADDERALL [Concomitant]
     Active Substance: AMPHETAMINE ASPARTATE\AMPHETAMINE SULFATE\DEXTROAMPHETAMINE SACCHARATE\DEXTROAMPHETAMINE SULFATE
  4. FLONASE [Concomitant]
     Active Substance: FLUTICASONE PROPIONATE
  5. ESTRACE [Concomitant]
     Active Substance: ESTRADIOL
  6. VIVELLE-DOT [Concomitant]
     Active Substance: ESTRADIOL
  7. CLOBETASOL [Concomitant]
     Active Substance: CLOBETASOL
  8. LEVOTHYROXINE [Concomitant]
     Active Substance: LEVOTHYROXINE
  9. ALBUTEROL SULFATE [Concomitant]
     Active Substance: ALBUTEROL SULFATE

REACTIONS (6)
  - Headache [None]
  - Vision blurred [None]
  - Visual impairment [None]
  - Migraine [None]
  - Skin discolouration [None]
  - Hypoaesthesia [None]

NARRATIVE: CASE EVENT DATE: 20230202
